FAERS Safety Report 9421915 (Version 2)
Quarter: 2013Q3

REPORT INFORMATION
  Report Type: Spontaneous
  Country: US (occurrence: US)
  Receive Date: 20130726
  Receipt Date: 20130814
  Transmission Date: 20140515
  Serious: No
  Sender: FDA-Public Use
  Company Number: US-PFIZER INC-2013214922

PATIENT
  Age: 64 Year
  Sex: Female

DRUGS (12)
  1. INLYTA [Suspect]
     Indication: METASTATIC RENAL CELL CARCINOMA
     Dosage: 5 MG, 2X/DAY
     Route: 048
     Dates: start: 20130624
  2. COZAAR [Concomitant]
     Dosage: 50 MG, 2X/DAY
  3. DEXILANT [Concomitant]
     Dosage: 60 MG, 1X/DAY
  4. FISH OIL [Concomitant]
     Dosage: DAILY
  5. MAXZIDE [Concomitant]
     Dosage: 75 MG, 1X/DAY
  6. METOPROLOL TARTRATE [Concomitant]
     Dosage: 50, 2X/DAY
  7. PRENATAL VITAMINS [Concomitant]
     Dosage: DAILY
  8. SIMVASTATIN [Concomitant]
     Dosage: 20, 1X/DAY
  9. SYNTHROID [Concomitant]
     Dosage: 112 UG, 1X/DAY
  10. VITAMIN D [Concomitant]
     Dosage: UNK
  11. WELCHOL [Concomitant]
     Dosage: 1875 MG, 2X/DAY
  12. NIFEDIPINE [Concomitant]
     Dosage: 30, 1X/DAY

REACTIONS (4)
  - Bone pain [Unknown]
  - Fatigue [Unknown]
  - Diarrhoea [Unknown]
  - Arthralgia [Not Recovered/Not Resolved]
